FAERS Safety Report 4793891-6 (Version None)
Quarter: 2005Q4

REPORT INFORMATION
  Report Type: 
  Country: None (occurrence: None)
  Receive Date: 20051006
  Receipt Date: 20050919
  Transmission Date: 20060501
  Serious: Yes (Death)
  Sender: FDA-Public Use
  Company Number: PAR_0332_2005

PATIENT
  Age: 45 Year
  Sex: 0

DRUGS (3)
  1. VALPROIC ACID [Suspect]
     Dosage: DF PO
     Route: 048
  2. ZIPRASIDONE [Suspect]
     Dosage: DF PO
     Route: 048
  3. FLUPHENAZINE [Suspect]
     Dosage: DF PO
     Route: 048

REACTIONS (1)
  - MULTIPLE DRUG OVERDOSE [None]
